FAERS Safety Report 22316760 (Version 5)
Quarter: 2024Q3

REPORT INFORMATION
  Report Type: Report from Study
  Country: US (occurrence: US)
  Receive Date: 20230513
  Receipt Date: 20240816
  Transmission Date: 20241016
  Serious: Yes (Hospitalization, Other)
  Sender: NOVARTIS
  Company Number: US-002147023-NVSC2023US108049

PATIENT
  Sex: Female

DRUGS (1)
  1. TASIGNA [Suspect]
     Active Substance: NILOTINIB
     Indication: Product used for unknown indication
     Dosage: UNK
     Route: 065

REACTIONS (14)
  - Cardiac disorder [Unknown]
  - Rhinorrhoea [Unknown]
  - Fatigue [Unknown]
  - Paraesthesia [Unknown]
  - Cardiac failure [Unknown]
  - Impaired healing [Unknown]
  - Brain fog [Unknown]
  - Memory impairment [Unknown]
  - Dermatitis contact [Unknown]
  - Weight increased [Unknown]
  - Musculoskeletal stiffness [Unknown]
  - Rash [Unknown]
  - Therapeutic response unexpected [Unknown]
  - Product dose omission issue [Unknown]
